FAERS Safety Report 4941480-2 (Version None)
Quarter: 2006Q1

REPORT INFORMATION
  Report Type: 
  Country: None (occurrence: None)
  Receive Date: 20060310
  Receipt Date: 20060310
  Transmission Date: 20060701
  Serious: Yes (Life-Threatening)
  Sender: FDA-Public Use
  Company Number: None

PATIENT
  Sex: Female
  Weight: 42.1845 kg

DRUGS (16)
  1. ADENOSINE [Suspect]
     Indication: SUPRAVENTRICULAR TACHYCARDIA
     Dates: start: 20051029
  2. LOVENOX [Concomitant]
  3. ROCEPHIN [Concomitant]
  4. SOMA [Concomitant]
  5. POTASSIUM [Concomitant]
  6. FLORINEF [Concomitant]
  7. PROTONIX [Concomitant]
  8. FENTANYL [Concomitant]
  9. INTEGRILIN [Concomitant]
  10. LOPRESSOR [Concomitant]
  11. MAGNESIUM [Concomitant]
  12. MORPHINE [Concomitant]
  13. RESTORIL [Concomitant]
  14. PHENERGAN [Concomitant]
  15. NORCO [Concomitant]
  16. XANAX [Concomitant]

REACTIONS (5)
  - APNOEA [None]
  - CARDIO-RESPIRATORY ARREST [None]
  - ELECTROMECHANICAL DISSOCIATION [None]
  - PULSE ABSENT [None]
  - TACHYCARDIA [None]
